FAERS Safety Report 16550887 (Version 2)
Quarter: 2021Q1

REPORT INFORMATION
  Report Type: Spontaneous
  Country: US (occurrence: US)
  Receive Date: 20190710
  Receipt Date: 20210104
  Transmission Date: 20210419
  Serious: Yes (Hospitalization)
  Sender: FDA-Public Use
  Company Number: US-GW PHARMA-201907USGW2317

PATIENT

DRUGS (1)
  1. EPIDIOLEX [Suspect]
     Active Substance: CANNABIDIOL
     Indication: SEIZURE
     Dosage: 150 MILLIGRAM, BID
     Route: 048
     Dates: start: 20190104

REACTIONS (1)
  - Medical device change [Unknown]

NARRATIVE: CASE EVENT DATE: 201905
